FAERS Safety Report 5738676-9 (Version None)
Quarter: 2008Q2

REPORT INFORMATION
  Report Type: 
  Country: None (occurrence: None)
  Receive Date: 20080515
  Receipt Date: 20080507
  Transmission Date: 20081010
  Serious: Yes (Other)
  Sender: FDA-Public Use
  Company Number: GB-NOVOPROD-273218

PATIENT
  Age: 14 Year
  Sex: Male
  Weight: 29.9 kg

DRUGS (3)
  1. NORDITROPIN [Suspect]
     Indication: BODY HEIGHT BELOW NORMAL
     Dosage: 5 MG/M2, QD
     Route: 058
  2. NORDITROPIN [Suspect]
     Dosage: 2.5 MG/M2, QD
     Route: 058
  3. GONAPEPTYL                         /00975901/ [Concomitant]
     Dosage: 5 MG, QD
     Route: 030

REACTIONS (5)
  - BLOOD CREATINE PHOSPHOKINASE INCREASED [None]
  - GAIT DISTURBANCE [None]
  - HEADACHE [None]
  - PAIN IN EXTREMITY [None]
  - URINARY TRACT INFECTION [None]
